FAERS Safety Report 22031094 (Version 1)
Quarter: 2023Q1

REPORT INFORMATION
  Report Type: Spontaneous
  Country: JP (occurrence: JP)
  Receive Date: 20230223
  Receipt Date: 20230223
  Transmission Date: 20230417
  Serious: Yes (Other)
  Sender: FDA-Public Use
  Company Number: JP-SUN PHARMACEUTICAL INDUSTRIES LTD-2023RR-380066

PATIENT
  Age: 55 Year
  Sex: Male

DRUGS (9)
  1. DASATINIB [Suspect]
     Active Substance: DASATINIB
     Indication: Lung adenocarcinoma
     Dosage: 40 MILLIGRAM, DAILY, LOWER DOSE
     Route: 065
     Dates: start: 201806
  2. DASATINIB [Suspect]
     Active Substance: DASATINIB
     Dosage: GRADUAL INCREASE TO 100 MG/DAY OVER THE FOLLOWING MONTH
     Route: 065
     Dates: end: 202101
  3. DASATINIB [Suspect]
     Active Substance: DASATINIB
     Dosage: 50 MILLIGRAM, DAILY
     Route: 065
     Dates: start: 202103, end: 202105
  4. NILOTINIB [Suspect]
     Active Substance: NILOTINIB
     Indication: Chronic myeloid leukaemia
     Dosage: UNK
     Route: 065
     Dates: start: 201706
  5. AFATINIB [Suspect]
     Active Substance: AFATINIB
     Indication: Lung adenocarcinoma
     Dosage: 40 MILLIGRAM, QD
     Route: 065
  6. AFATINIB [Suspect]
     Active Substance: AFATINIB
     Dosage: 30 MILLIGRAM, DAILY
     Route: 065
     Dates: end: 201801
  7. AFATINIB [Suspect]
     Active Substance: AFATINIB
     Dosage: 20 MILLIGRAM, DAILY
     Route: 065
  8. CARBOPLATIN [Suspect]
     Active Substance: CARBOPLATIN
     Indication: Lung adenocarcinoma stage I
     Dosage: ON DAY 1, EVERY 4 WEEKS, FOUR CYCLES
     Route: 065
     Dates: start: 200707
  9. PACLITAXEL [Suspect]
     Active Substance: PACLITAXEL
     Indication: Lung adenocarcinoma stage I
     Dosage: 50 MILLIGRAM PER CUBIC METRE ON DAYS 1, 8, AND 15, FOUR CYCLES, EVERY 4 WEEKS
     Route: 065
     Dates: start: 200707

REACTIONS (7)
  - Disease recurrence [Unknown]
  - Therapeutic product effect incomplete [Unknown]
  - Skin toxicity [Unknown]
  - Diarrhoea [Unknown]
  - Decreased appetite [Unknown]
  - Pleural effusion [Recovering/Resolving]
  - Abnormal loss of weight [Unknown]

NARRATIVE: CASE EVENT DATE: 20210101
